FAERS Safety Report 16707850 (Version 1)
Quarter: 2019Q3

REPORT INFORMATION
  Report Type: Spontaneous
  Country: US (occurrence: US)
  Receive Date: 20190815
  Receipt Date: 20190815
  Transmission Date: 20191004
  Serious: No
  Sender: FDA-Public Use
  Company Number: US-AKRON, INC.-2073203

PATIENT
  Sex: Male

DRUGS (1)
  1. ATROPINE SULFATE OPHTHALMIC SOLUTION [Suspect]
     Active Substance: ATROPINE SULFATE
     Route: 047

REACTIONS (2)
  - Eye pruritus [Recovered/Resolved]
  - Eye pain [Recovered/Resolved]
